FAERS Safety Report 4951240-4 (Version None)
Quarter: 2006Q1

REPORT INFORMATION
  Report Type: 
  Country: None (occurrence: None)
  Receive Date: 20060317
  Receipt Date: 20060303
  Transmission Date: 20060701
  Serious: Yes (Death, Hospitalization)
  Sender: FDA-Public Use
  Company Number: 13659

PATIENT
  Age: 36 Year
  Sex: Female

DRUGS (9)
  1. CISPLATIN [Suspect]
     Indication: T-CELL LYMPHOMA
     Dosage: 100 MG/M2 PER_CYCLE
  2. CYTARABINE [Suspect]
     Indication: T-CELL LYMPHOMA
     Dosage: 2 G/M2 PER_CYCLE IV
     Route: 042
  3. DEXAMETHASONE TAB [Suspect]
     Indication: T-CELL LYMPHOMA
     Dosage: 40 MG QD
  4. ETOPOSIDE [Suspect]
     Indication: T-CELL LYMPHOMA
     Dosage: 150 MG/M2 PER_CYCLE
  5. METHOTREXATE [Suspect]
     Indication: T-CELL LYMPHOMA
  6. IDARUBICIN HCL [Suspect]
     Indication: T-CELL LYMPHOMA
     Dosage: 10 MG/M2 PER_CYCLE
  7. IDARUBICIN HCL [Suspect]
     Indication: T-CELL LYMPHOMA
     Dosage: 5MG/M2 PER_CYCLE
  8. IFOSFAMIDE [Suspect]
     Indication: T-CELL LYMPHOMA
     Dosage: 1000 MG/M2 PER_CYCLE
  9. MESNA [Suspect]
     Indication: T-CELL LYMPHOMA
     Dosage: 600 MG/M2 PER_CYCLE

REACTIONS (38)
  - ALANINE AMINOTRANSFERASE INCREASED [None]
  - APNOEA [None]
  - AREFLEXIA [None]
  - ASPARTATE AMINOTRANSFERASE INCREASED [None]
  - BILIRUBIN CONJUGATED INCREASED [None]
  - BLINDNESS CORTICAL [None]
  - BLOOD ALKALINE PHOSPHATASE INCREASED [None]
  - BLOOD BILIRUBIN UNCONJUGATED INCREASED [None]
  - BLOOD CREATININE INCREASED [None]
  - BLOOD PRESSURE INCREASED [None]
  - BLOOD SODIUM DECREASED [None]
  - BLOOD URIC ACID INCREASED [None]
  - CONVULSION [None]
  - DISORIENTATION [None]
  - DRUG INEFFECTIVE [None]
  - ELECTROENCEPHALOGRAM ABNORMAL [None]
  - GAMMA-GLUTAMYLTRANSFERASE INCREASED [None]
  - GENERAL PHYSICAL HEALTH DETERIORATION [None]
  - GRAND MAL CONVULSION [None]
  - HAEMODIALYSIS [None]
  - HALLUCINATION [None]
  - HEPATIC FUNCTION ABNORMAL [None]
  - HILAR LYMPHADENOPATHY [None]
  - LEUKOENCEPHALOPATHY [None]
  - LOSS OF CONSCIOUSNESS [None]
  - MALIGNANT NEOPLASM PROGRESSION [None]
  - MEGAKARYOCYTES DECREASED [None]
  - MENTAL IMPAIRMENT [None]
  - MENTAL STATUS CHANGES [None]
  - NUCLEAR MAGNETIC RESONANCE IMAGING BRAIN ABNORMAL [None]
  - PAPILLOEDEMA [None]
  - PARANEOPLASTIC SYNDROME [None]
  - PLATELET COUNT DECREASED [None]
  - PUPILLARY REFLEX IMPAIRED [None]
  - RED BLOOD CELLS CSF POSITIVE [None]
  - RENAL MASS [None]
  - STUPOR [None]
  - T-CELL LYMPHOMA [None]
